FAERS Safety Report 11262503 (Version 2)
Quarter: 2015Q3

REPORT INFORMATION
  Report Type: Spontaneous
  Country: DK (occurrence: DK)
  Receive Date: 20150710
  Receipt Date: 20150814
  Transmission Date: 20151125
  Serious: Yes (Hospitalization, Other)
  Sender: FDA-Public Use
  Company Number: DK-ELI_LILLY_AND_COMPANY-DK201012003464

PATIENT
  Age: 55 Year
  Sex: Female
  Weight: 60 kg

DRUGS (6)
  1. ZYPREXA [Suspect]
     Active Substance: OLANZAPINE
     Dosage: 7.5 MG, DAILY (1/D)
     Route: 048
     Dates: start: 200301
  2. RISPERDAL [Suspect]
     Active Substance: RISPERIDONE
     Indication: SCHIZOPHRENIA, PARANOID TYPE
     Dosage: UNK, UNKNOWN
     Route: 065
  3. ZYPREXA [Suspect]
     Active Substance: OLANZAPINE
     Dosage: 20 MG, DAILY (1/D)
     Route: 048
     Dates: start: 201008
  4. SEROQUEL [Suspect]
     Active Substance: QUETIAPINE FUMARATE
     Indication: SCHIZOPHRENIA, PARANOID TYPE
     Dosage: UNK, UNKNOWN
     Route: 065
  5. ZYPREXA [Suspect]
     Active Substance: OLANZAPINE
     Indication: SCHIZOPHRENIA, PARANOID TYPE
     Dosage: 15 MG, DAILY (1/D)
     Route: 048
     Dates: start: 200202
  6. OXAZEPAM. [Concomitant]
     Active Substance: OXAZEPAM
     Dates: start: 200202

REACTIONS (15)
  - Myalgia [Unknown]
  - Blood cholesterol increased [Unknown]
  - Body temperature decreased [Unknown]
  - Renal failure [Unknown]
  - Fall [Recovered/Resolved]
  - Muscle twitching [Unknown]
  - Glucose tolerance impaired [Unknown]
  - Incorrect dose administered [Recovered/Resolved]
  - Pulse pressure increased [Unknown]
  - Hypertension [Recovered/Resolved]
  - Muscle atrophy [Unknown]
  - Insomnia [Not Recovered/Not Resolved]
  - Paraesthesia [Unknown]
  - Muscular weakness [Unknown]
  - Lacrimation decreased [Unknown]

NARRATIVE: CASE EVENT DATE: 200301
